FAERS Safety Report 18525212 (Version 1)
Quarter: 2020Q4

REPORT INFORMATION
  Report Type: Spontaneous
  Country: US (occurrence: US)
  Receive Date: 20201119
  Receipt Date: 20201119
  Transmission Date: 20210114
  Serious: Yes (Other)
  Sender: FDA-Public Use
  Company Number: US-BAUSCH-BL-2020-033067

PATIENT
  Sex: Female

DRUGS (2)
  1. UCERIS [Suspect]
     Active Substance: BUDESONIDE
     Indication: DIVERTICULITIS
     Dosage: STARTED MID-OCT/2020, 1 METERED DOSE
     Route: 054
     Dates: start: 202010, end: 2020
  2. UCERIS [Suspect]
     Active Substance: BUDESONIDE
     Indication: OFF LABEL USE
     Dosage: 1 METERED DOSE
     Route: 054
     Dates: start: 2020, end: 20201106

REACTIONS (8)
  - Haematochezia [Not Recovered/Not Resolved]
  - Nervousness [Not Recovered/Not Resolved]
  - Abdominal pain [Unknown]
  - Dysmenorrhoea [Unknown]
  - Product container issue [Unknown]
  - Malaise [Unknown]
  - Off label use [Unknown]
  - Drug ineffective for unapproved indication [Unknown]

NARRATIVE: CASE EVENT DATE: 2020
